FAERS Safety Report 7866229-5 (Version None)
Quarter: 2011Q4

REPORT INFORMATION
  Report Type: 
  Country: None (occurrence: None)
  Receive Date: 20111028
  Receipt Date: 20110516
  Transmission Date: 20120403
  Serious: No
  Sender: FDA-Public Use
  Company Number: US-GLAXOSMITHKLINE-A0927524A

PATIENT
  Age: 52 Year
  Sex: Female
  Weight: 81.7 kg

DRUGS (9)
  1. ADVAIR DISKUS 100/50 [Suspect]
     Dosage: 1PUFF TWICE PER DAY
     Route: 055
     Dates: start: 20110301, end: 20110301
  2. SYNTHROID [Concomitant]
  3. DIAZEPAM [Concomitant]
  4. ADVAIR DISKUS 100/50 [Suspect]
     Indication: ASTHMA
     Dosage: 1PUFF TWICE PER DAY
     Route: 055
     Dates: start: 20110201
  5. SINGULAIR [Concomitant]
  6. NASONEX [Concomitant]
  7. OMEPRAZOLE [Concomitant]
  8. VENTOLIN [Concomitant]
  9. SALAGEN [Concomitant]

REACTIONS (3)
  - DYSPNOEA [None]
  - PRODUCT QUALITY ISSUE [None]
  - NAUSEA [None]
